FAERS Safety Report 8343808-2 (Version None)
Quarter: 2012Q1

REPORT INFORMATION
  Report Type: 
  Country: None (occurrence: None)
  Receive Date: 20120330
  Receipt Date: 20111019
  Transmission Date: 20120608
  Serious: Yes (Other)
  Sender: FDA-Public Use
  Company Number: PHEH2011US07345

PATIENT
  Age: 79 Year
  Sex: Female

DRUGS (10)
  1. LORAZEPAM [Concomitant]
  2. EXELON [Suspect]
     Dosage: 9.5 MG, DAILY
  3. OMEPRAZOLE [Concomitant]
  4. LEVOTHYROXINE SODIUM [Concomitant]
  5. GABAPENTIN [Concomitant]
  6. NAPROXEN (ALEVE) [Concomitant]
  7. OXYBUTYNIN [Concomitant]
  8. ALENDRONATE SODIUM [Concomitant]
  9. ASPIRIN [Concomitant]
  10. MULTI-VITAMINS [Concomitant]

REACTIONS (7)
  - DYSLALIA [None]
  - APPLICATION SITE PAIN [None]
  - DEPRESSION [None]
  - DECREASED APPETITE [None]
  - APPLICATION SITE ERYTHEMA [None]
  - BURNING SENSATION [None]
  - ORAL DISCOMFORT [None]
